FAERS Safety Report 23618907 (Version 1)
Quarter: 2024Q1

REPORT INFORMATION
  Report Type: Spontaneous
  Country: US (occurrence: US)
  Receive Date: 20240311
  Receipt Date: 20240311
  Transmission Date: 20240410
  Serious: No
  Sender: FDA-Public Use
  Company Number: US-BAYER-2024A035634

PATIENT
  Age: 78 Year
  Sex: Female

DRUGS (4)
  1. CLARITIN [Suspect]
     Active Substance: LORATADINE
     Indication: Muscle spasms
     Dosage: 1 DF, QD
     Route: 048
     Dates: start: 2022
  2. CLARITIN [Suspect]
     Active Substance: LORATADINE
     Indication: Cough
  3. CLARITIN [Suspect]
     Active Substance: LORATADINE
     Indication: Thrombosis
  4. PROLIA [Suspect]
     Active Substance: DENOSUMAB
     Dosage: UNK

REACTIONS (2)
  - Off label use [Recovered/Resolved]
  - Drug effective for unapproved indication [None]
